FAERS Safety Report 8989334 (Version 1)
Quarter: 2012Q4

REPORT INFORMATION
  Report Type: 
  Country: GB (occurrence: GB)
  Receive Date: 20121227
  Receipt Date: 20121227
  Transmission Date: 20130627
  Serious: Yes (Other)
  Sender: FDA-Public Use
  Company Number: GB-ABBOTT-12P-167-0990119-00

PATIENT
  Sex: Female

DRUGS (6)
  1. HUMIRA [Suspect]
     Indication: PSORIATIC ARTHROPATHY
     Route: 058
     Dates: start: 20111105, end: 20120517
  2. LEFLUNOMIDE [Concomitant]
     Indication: PSORIATIC ARTHROPATHY
     Route: 048
     Dates: start: 20110210
  3. CITALOPRAM [Concomitant]
     Indication: DEPRESSION
     Route: 048
  4. RAMIPRIL [Concomitant]
     Indication: HYPERTENSION
     Route: 048
  5. LEVETIRACETAM [Concomitant]
     Indication: EPILEPSY
     Route: 048
  6. LEVETIRACETAM [Concomitant]
     Indication: POOR QUALITY SLEEP
     Dosage: Nocte
     Route: 048
     Dates: start: 20091119

REACTIONS (1)
  - Psoriasis [Recovering/Resolving]
